FAERS Safety Report 5683293-2 (Version None)
Quarter: 2008Q1

REPORT INFORMATION
  Report Type: 
  Country: None (occurrence: None)
  Receive Date: 20080327
  Receipt Date: 20080320
  Transmission Date: 20080703
  Serious: Yes (Hospitalization, Other)
  Sender: FDA-Public Use
  Company Number: US-PFIZER INC-2007027783

PATIENT
  Sex: Female

DRUGS (2)
  1. CELEBREX [Suspect]
     Dates: start: 20021122, end: 20030306
  2. BEXTRA [Suspect]
     Dates: start: 20020731, end: 20040901

REACTIONS (1)
  - MYOCARDIAL INFARCTION [None]
